FAERS Safety Report 7209636-6 (Version None)
Quarter: 2011Q1

REPORT INFORMATION
  Report Type: 
  Country: None (occurrence: None)
  Receive Date: 20110103
  Receipt Date: 20110103
  Transmission Date: 20110831
  Serious: No
  Sender: FDA-Public Use
  Company Number: None

PATIENT
  Age: 17 Year
  Sex: Female
  Weight: 49.8957 kg

DRUGS (1)
  1. MOON DROPS HISTORICAL REMEDIES [Suspect]
     Dosage: 2 TABLETS ONE PER DAY PO
     Route: 048
     Dates: start: 20100808, end: 20100810

REACTIONS (1)
  - NO ADVERSE EVENT [None]
